FAERS Safety Report 6669304-6 (Version None)
Quarter: 2010Q2

REPORT INFORMATION
  Report Type: 
  Country: None (occurrence: None)
  Receive Date: 20100402
  Receipt Date: 20100325
  Transmission Date: 20101027
  Serious: Yes (Life-Threatening, Hospitalization, Other)
  Sender: FDA-Public Use
  Company Number: 233101J10USA

PATIENT
  Age: 40 Year
  Sex: Female
  Weight: 77 kg

DRUGS (5)
  1. REBIF [Suspect]
     Indication: MULTIPLE SCLEROSIS
     Dosage: 44 MCG, 3 IN 1 WEEKS, SUBCUTANEOUS
     Route: 058
     Dates: start: 20080725
  2. AVIANE (EUGYNON /00022701/) [Concomitant]
  3. CYMBALTA [Concomitant]
  4. FLEXERIL [Concomitant]
  5. CORGARD [Concomitant]

REACTIONS (4)
  - DEEP VEIN THROMBOSIS [None]
  - OPTIC NEURITIS [None]
  - PULMONARY EMBOLISM [None]
  - THROMBOPHLEBITIS SUPERFICIAL [None]
